FAERS Safety Report 10084544 (Version 2)
Quarter: 2014Q2

REPORT INFORMATION
  Report Type: Spontaneous
  Country: US (occurrence: US)
  Receive Date: 20140417
  Receipt Date: 20140604
  Transmission Date: 20141212
  Serious: Yes (Other)
  Sender: FDA-Public Use
  Company Number: US-GLAXOSMITHKLINE-A1068903A

PATIENT
  Age: 51 Year
  Sex: Female

DRUGS (14)
  1. BENLYSTA [Suspect]
     Indication: SYSTEMIC LUPUS ERYTHEMATOSUS
     Route: 042
     Dates: start: 201106
  2. DEXILANT [Concomitant]
  3. LINZESS [Concomitant]
  4. DULOXETINE [Concomitant]
  5. HYDROCHLOROTHIAZIDE [Concomitant]
  6. PLAQUENIL [Concomitant]
  7. LEVOCETIRIZINE [Concomitant]
  8. MONTELUKAST [Concomitant]
  9. PREDNISONE [Concomitant]
  10. VENTOLIN [Concomitant]
  11. DULERA [Concomitant]
  12. MIRALAX [Concomitant]
  13. AMBIEN [Concomitant]
  14. TRIAMCINOLONE CREAM [Concomitant]

REACTIONS (11)
  - Systemic lupus erythematosus [Recovering/Resolving]
  - Stress [Not Recovered/Not Resolved]
  - Headache [Not Recovered/Not Resolved]
  - Insomnia [Not Recovered/Not Resolved]
  - Stomatitis [Not Recovered/Not Resolved]
  - Pain of skin [Not Recovered/Not Resolved]
  - Rash erythematous [Not Recovered/Not Resolved]
  - Osteitis [Not Recovered/Not Resolved]
  - Arthritis [Not Recovered/Not Resolved]
  - Weight decreased [Not Recovered/Not Resolved]
  - Overdose [Not Recovered/Not Resolved]
